FAERS Safety Report 5489913-X (Version None)
Quarter: 2007Q4

REPORT INFORMATION
  Report Type: 
  Country: None (occurrence: None)
  Receive Date: 20071018
  Receipt Date: 20071017
  Transmission Date: 20080405
  Serious: Yes (Other)
  Sender: FDA-Public Use
  Company Number: US-SHR-US-2007-013274

PATIENT
  Age: 52 Year
  Sex: Female
  Weight: 76.6 kg

DRUGS (3)
  1. MIRENA [Suspect]
     Indication: HORMONE THERAPY
     Dosage: 20 A?G/DAY, CONT
     Route: 015
     Dates: start: 20030701
  2. SYNTHROID [Concomitant]
     Route: 048
  3. NIFEDIPINE [Concomitant]
     Route: 048

REACTIONS (3)
  - ABDOMINAL PAIN [None]
  - BACK PAIN [None]
  - BREAST CANCER [None]
